FAERS Safety Report 4763314-1 (Version None)
Quarter: 2005Q3

REPORT INFORMATION
  Report Type: 
  Country: None (occurrence: None)
  Receive Date: 20050902
  Receipt Date: 20050822
  Transmission Date: 20060218
  Serious: Yes (Life-Threatening, Hospitalization)
  Sender: FDA-Public Use
  Company Number: 12208

PATIENT
  Sex: Male
  Weight: 77.5651 kg

DRUGS (16)
  1. PACLITAXEL [Suspect]
     Indication: LUNG CANCER METASTATIC
     Dosage: 350 MG Q3W IV
     Route: 042
     Dates: start: 20050623, end: 20050623
  2. LISINOPRIL [Concomitant]
  3. TERAZOSIN HCL [Concomitant]
  4. FOSAMAX [Suspect]
  5. LOVASTATIN [Concomitant]
  6. SAW PALMETTO [Concomitant]
  7. POTASSIUM CHLORIDE [Concomitant]
  8. ASPIRIN [Concomitant]
  9. VITAMINS [Concomitant]
  10. LEVAQUIN [Concomitant]
  11. COMPAZINE [Concomitant]
  12. MEGACE ORAL SUSPENSION [Concomitant]
  13. SULFAMETHORAZONE/TRIMETH [Concomitant]
  14. LANOXIN [Concomitant]
  15. METOPROLOL [Concomitant]
  16. HYDROCHLOROTHIAZIDE/TRIAMTERINE [Concomitant]

REACTIONS (3)
  - CARDIO-RESPIRATORY ARREST [None]
  - CHEST PAIN [None]
  - DEPRESSED LEVEL OF CONSCIOUSNESS [None]
